FAERS Safety Report 9370331 (Version 1)
Quarter: 2013Q2

REPORT INFORMATION
  Report Type: Spontaneous
  Country: US (occurrence: US)
  Receive Date: 20130626
  Receipt Date: 20130626
  Transmission Date: 20140414
  Serious: No
  Sender: FDA-Public Use
  Company Number: US-PFIZER INC-2013187649

PATIENT
  Age: 75 Year
  Sex: Female
  Weight: 86.17 kg

DRUGS (3)
  1. ADVIL [Suspect]
     Indication: BACK PAIN
     Dosage: UNK, AS NEEDED (ONE TO TWO TIMES A WEEK)
     Dates: end: 201304
  2. RAMIPRIL [Concomitant]
     Indication: HYPERTENSION
     Dosage: 10 MG, DAILY
  3. SIMVASTATIN [Concomitant]
     Indication: BLOOD CHOLESTEROL INCREASED
     Dosage: 40 MG, FOUR TIMES A WEEK

REACTIONS (1)
  - Renal disorder [Unknown]
